FAERS Safety Report 24631049 (Version 1)
Quarter: 2024Q4

REPORT INFORMATION
  Report Type: Spontaneous
  Country: US (occurrence: None)
  Receive Date: 20241117
  Receipt Date: 20241117
  Transmission Date: 20250114
  Serious: No
  Sender: Public
  Company Number: None

PATIENT
  Age: 41 Year
  Sex: Female
  Weight: 76.5 kg

DRUGS (3)
  1. KANKA SOFTBRUSH [Suspect]
     Active Substance: BENZOCAINE\ZINC CHLORIDE
     Indication: Aphthous ulcer
     Dates: start: 20241116, end: 20241117
  2. ZOLPIDEM [Concomitant]
     Active Substance: ZOLPIDEM TARTRATE
  3. TYLENOL [Concomitant]
     Active Substance: ACETAMINOPHEN

REACTIONS (3)
  - Lip swelling [None]
  - Eye swelling [None]
  - Lacrimation increased [None]

NARRATIVE: CASE EVENT DATE: 20241117
